FAERS Safety Report 10223400 (Version 1)
Quarter: 2014Q2

REPORT INFORMATION
  Report Type: Spontaneous
  Country: US (occurrence: None)
  Receive Date: 20140605
  Receipt Date: 20140605
  Transmission Date: 20141212
  Serious: No
  Sender: FDA-Public Use
  Company Number: 14-01232

PATIENT
  Age: 55 Year
  Sex: Male

DRUGS (6)
  1. ALBUTEROL SULFATE INHALATION SOLUTION [Suspect]
     Indication: CHRONIC OBSTRUCTIVE PULMONARY DISEASE
     Dosage: 1VIAL Q4H 054
     Dates: start: 2007, end: 2014
  2. SPIRIVA [Concomitant]
  3. ADVAIR (FLUTICASONE/SALMETEROL) [Concomitant]
  4. PROAIR HFA (ALBUTEROL) [Concomitant]
  5. DILTIAZEM [Concomitant]
  6. WARFARIN SODIUM [Concomitant]

REACTIONS (4)
  - Dyspnoea [None]
  - Syncope [None]
  - Loss of consciousness [None]
  - No therapeutic response [None]
